FAERS Safety Report 9201483 (Version 2)
Quarter: 2013Q2

REPORT INFORMATION
  Report Type: Spontaneous
  Country: IT (occurrence: IT)
  Receive Date: 20130401
  Receipt Date: 20130501
  Transmission Date: 20140414
  Serious: Yes (Death)
  Sender: FDA-Public Use
  Company Number: IT-PFIZER INC-2013101340

PATIENT
  Age: 77 Year
  Sex: Male

DRUGS (5)
  1. SUTENT [Suspect]
     Indication: RENAL CANCER METASTATIC
     Dosage: 37.5 MG, DAILY
     Route: 048
     Dates: start: 20120727, end: 20121006
  2. AMIODARONE HYDROCHLORIDE [Concomitant]
     Indication: ARRHYTHMIA
     Dosage: 200 MG, UNK
     Dates: start: 20120629, end: 20121017
  3. CARDICOR [Concomitant]
     Indication: CARDIAC FAILURE
     Dosage: 0.62 MG, UNK
     Route: 048
     Dates: start: 20120629, end: 20121017
  4. CLEXANE [Concomitant]
     Indication: THROMBOSIS PROPHYLAXIS
     Dosage: 1 DF, UNK
     Route: 058
     Dates: start: 20120726, end: 20121017
  5. ACESISTEM [Concomitant]
     Indication: HYPERTENSION
     Dosage: 0.5 DF, UNK
     Dates: start: 20120511, end: 20121017

REACTIONS (2)
  - Intestinal perforation [Fatal]
  - Pancytopenia [Fatal]
